FAERS Safety Report 8836002 (Version 1)
Quarter: 2012Q4

REPORT INFORMATION
  Report Type: 
  Country: GB (occurrence: GB)
  Receive Date: 20121011
  Receipt Date: 20121011
  Transmission Date: 20130627
  Serious: Yes (Other)
  Sender: FDA-Public Use
  Company Number: GB-ABBOTT-12P-167-0972123-00

PATIENT
  Age: 62 None
  Sex: Female

DRUGS (2)
  1. HUMIRA [Suspect]
     Indication: CROHN^S DISEASE
     Route: 058
     Dates: start: 20120314
  2. HUMIRA [Suspect]

REACTIONS (13)
  - Adverse reaction [Unknown]
  - Arthralgia [Unknown]
  - Arthralgia [Unknown]
  - Abdominal discomfort [Unknown]
  - Arthralgia [Recovered/Resolved]
  - Fatigue [Not Recovered/Not Resolved]
  - Insomnia [Not Recovered/Not Resolved]
  - Listless [Not Recovered/Not Resolved]
  - Incorrect product storage [Unknown]
  - Poor quality drug administered [Unknown]
  - Injection site swelling [Not Recovered/Not Resolved]
  - Injection site erythema [Not Recovered/Not Resolved]
  - Gastrooesophageal reflux disease [Not Recovered/Not Resolved]
